FAERS Safety Report 7883499-8 (Version None)
Quarter: 2011Q4

REPORT INFORMATION
  Report Type: 
  Country: None (occurrence: None)
  Receive Date: 20111102
  Receipt Date: 20110509
  Transmission Date: 20120403
  Serious: No
  Sender: FDA-Public Use
  Company Number: US-GLAXOSMITHKLINE-A0927411A

PATIENT
  Age: 75 Year
  Sex: Female

DRUGS (1)
  1. RYTHMOL SR [Suspect]
     Indication: PRODUCT USED FOR UNKNOWN INDICATION
     Dosage: 225MG UNKNOWN
     Route: 065
     Dates: start: 20110426

REACTIONS (2)
  - ASTHENIA [None]
  - HYPOTENSION [None]
